FAERS Safety Report 4367788-X (Version None)
Quarter: 2004Q2

REPORT INFORMATION
  Report Type: 
  Country: None (occurrence: None)
  Receive Date: 20040601
  Receipt Date: 20040525
  Transmission Date: 20050107
  Serious: Yes (Death, Hospitalization, Other)
  Sender: FDA-Public Use
  Company Number: NL-MERCK-0405NLD00017

PATIENT
  Age: 60 Year
  Sex: Male

DRUGS (7)
  1. ASPIRIN CALCIUM [Concomitant]
     Route: 048
  2. CARBOPLATIN [Suspect]
     Indication: LUNG CARCINOMA CELL TYPE UNSPECIFIED STAGE 0
     Route: 041
     Dates: start: 20040406, end: 20040413
  3. ENALAPRIL MALEATE [Concomitant]
     Route: 048
     Dates: start: 20040501
  4. GEMCITABINE [Suspect]
     Indication: LUNG CARCINOMA CELL TYPE UNSPECIFIED STAGE 0
     Route: 042
     Dates: start: 20040406, end: 20040413
  5. METOPROLOL TARTRATE [Concomitant]
     Route: 048
  6. NAPROXEN [Concomitant]
     Route: 048
     Dates: end: 20040501
  7. ZOCOR [Suspect]
     Indication: HYPERCHOLESTEROLAEMIA
     Route: 048
     Dates: end: 20040501

REACTIONS (3)
  - DEATH [None]
  - DIALYSIS [None]
  - RHABDOMYOLYSIS [None]
